FAERS Safety Report 26185734 (Version 1)
Quarter: 2025Q4

REPORT INFORMATION
  Report Type: Spontaneous
  Country: US (occurrence: None)
  Receive Date: 20251219
  Receipt Date: 20251219
  Transmission Date: 20260118
  Serious: Yes (Other)
  Sender: FDA-CTU
  Company Number: None

PATIENT
  Age: 31 Year
  Sex: Female

DRUGS (6)
  1. METRONIDAZOLE [Suspect]
     Active Substance: METRONIDAZOLE
     Indication: Bacterial vaginosis
     Dosage: 5 INJECTION(S) AT BEDTIME VAGINAL
     Route: 067
     Dates: start: 20251218, end: 20251219
  2. XCOPRI [Concomitant]
     Active Substance: CENOBAMATE
  3. LAMOTRIGINE [Concomitant]
     Active Substance: LAMOTRIGINE
  4. ZONISAMIDE [Concomitant]
     Active Substance: ZONISAMIDE
  5. Minipill. [Concomitant]
  6. Neuropace RNS [Concomitant]

REACTIONS (2)
  - Hypoaesthesia [None]
  - Paraesthesia [None]

NARRATIVE: CASE EVENT DATE: 20251218
